FAERS Safety Report 7494167-9 (Version None)
Quarter: 2011Q2

REPORT INFORMATION
  Report Type: 
  Country: None (occurrence: None)
  Receive Date: 20110520
  Receipt Date: 20110511
  Transmission Date: 20111010
  Serious: Yes (Hospitalization)
  Sender: FDA-Public Use
  Company Number: US-ASTRAZENECA-2011SE23083

PATIENT
  Age: 75 Year
  Sex: Female

DRUGS (8)
  1. GLIPIZIDE [Concomitant]
  2. MIRALAX [Concomitant]
     Dosage: EVERY MORNING
  3. CRESTOR [Suspect]
     Indication: HYPERCHOLESTEROLAEMIA
     Route: 048
  4. METAMUCIL-2 [Concomitant]
     Dosage: EVERY MORNING
  5. SENOKOT [Concomitant]
  6. AMITIZA [Concomitant]
     Dosage: BEFORE MEAL IN THE MORNING AND EVENING
  7. METFORMIN HCL [Concomitant]
  8. ATACAND [Suspect]
     Indication: HYPERTENSION
     Route: 048

REACTIONS (4)
  - GASTROINTESTINAL DISORDER [None]
  - CONSTIPATION [None]
  - DIABETES MELLITUS [None]
  - HOSPITALISATION [None]
